FAERS Safety Report 4401262-7 (Version None)
Quarter: 2004Q3

REPORT INFORMATION
  Report Type: 
  Country: None (occurrence: None)
  Receive Date: 20040907
  Receipt Date: 20040126
  Transmission Date: 20050211
  Serious: No
  Sender: FDA-Public Use
  Company Number: US-BRISTOL-MYERS SQUIBB COMPANY-12487203

PATIENT
  Age: 71 Year
  Sex: Female
  Weight: 69 kg

DRUGS (2)
  1. COUMADIN [Suspect]
     Indication: HEART VALVE REPLACEMENT
     Dosage: 3MG TABS OD SINCE 2002.  2.5 MG ALT WITH 3 MG/DAY X 3 MONTHS.  EVENT AFTER 2.5 MG INTAKE.
     Route: 048
     Dates: start: 20030101
  2. BLOOD PRESSURE MEDICATION [Concomitant]
     Indication: HYPERTENSION

REACTIONS (1)
  - PRURITUS [None]
